FAERS Safety Report 7903862-6 (Version None)
Quarter: 2011Q4

REPORT INFORMATION
  Report Type: 
  Country: None (occurrence: None)
  Receive Date: 20111109
  Receipt Date: 20110721
  Transmission Date: 20120403
  Serious: No
  Sender: FDA-Public Use
  Company Number: US-BAYER-2011-064382

PATIENT
  Sex: Male

DRUGS (2)
  1. UNKNOWN SUPPLEMENTS [Concomitant]
  2. ALEVE (CAPLET) [Suspect]
     Indication: HEADACHE
     Dosage: 2 DF, UNK
     Route: 048
     Dates: start: 20110721, end: 20110721

REACTIONS (1)
  - HEADACHE [None]
